FAERS Safety Report 13643811 (Version 1)
Quarter: 2017Q2

REPORT INFORMATION
  Report Type: Spontaneous
  Country: DE (occurrence: DE)
  Receive Date: 20170612
  Receipt Date: 20170612
  Transmission Date: 20170830
  Serious: Yes (Other)
  Sender: FDA-Public Use
  Company Number: GXKR2017DE003082

PATIENT

DRUGS (4)
  1. METOHEXAL SUCC [Suspect]
     Active Substance: METOPROLOL SUCCINATE
     Indication: PRODUCT USED FOR UNKNOWN INDICATION
     Dosage: 42.5 MG, QHS
     Route: 048
  2. METOHEXAL SUCC [Suspect]
     Active Substance: METOPROLOL SUCCINATE
     Dosage: 190 MG, ONCE DAILY IN THE MORNING
     Route: 048
  3. RAMIPRIL. [Suspect]
     Active Substance: RAMIPRIL
     Indication: PRODUCT USED FOR UNKNOWN INDICATION
     Dosage: 10 MG, ONCE DAILY IN THE MORNING
     Route: 048
  4. VIACORAM [Suspect]
     Active Substance: AMLODIPINE BESYLATE\PERINDOPRIL ARGININE
     Indication: PRODUCT USED FOR UNKNOWN INDICATION
     Dosage: 1-2 DF, TAKEN IN THE EVENING
     Route: 048

REACTIONS (7)
  - Presyncope [Recovering/Resolving]
  - Blood pressure increased [Recovering/Resolving]
  - Limb discomfort [Recovering/Resolving]
  - Electrocardiogram T wave inversion [Unknown]
  - Night sweats [Recovering/Resolving]
  - Visual impairment [Recovering/Resolving]
  - Blood pressure decreased [Not Recovered/Not Resolved]
